FAERS Safety Report 11202232 (Version 1)
Quarter: 2015Q2

REPORT INFORMATION
  Report Type: Spontaneous
  Country: US (occurrence: US)
  Receive Date: 20150619
  Receipt Date: 20150619
  Transmission Date: 20150821
  Serious: Yes (Death)
  Sender: FDA-Public Use
  Company Number: US-PFIZER INC-2015199665

PATIENT
  Age: 67 Year
  Sex: Female

DRUGS (1)
  1. PHENYTOIN SODIUM. [Suspect]
     Active Substance: PHENYTOIN SODIUM
     Dosage: 250 MG, UNK
     Route: 042

REACTIONS (3)
  - Sinus arrhythmia [Fatal]
  - Cardiac arrest [Fatal]
  - Rhythm idioventricular [Fatal]

NARRATIVE: CASE EVENT DATE: 1966
